FAERS Safety Report 8197141-2 (Version None)
Quarter: 2012Q1

REPORT INFORMATION
  Report Type: 
  Country: None (occurrence: None)
  Receive Date: 20120309
  Receipt Date: 20120302
  Transmission Date: 20120608
  Serious: Yes (Life-Threatening, Other)
  Sender: FDA-Public Use
  Company Number: DE-ROXANE LABORATORIES, INC.-2012-RO-00779RO

PATIENT
  Age: 43 Year
  Sex: Male

DRUGS (5)
  1. ESCITALOPRAM [Suspect]
     Dosage: 20 MG
  2. QUETIAPINE [Suspect]
     Indication: INITIAL INSOMNIA
     Dosage: 100 MG
  3. ROPINIROLE [Suspect]
     Dosage: 2 MG
  4. ESCITALOPRAM [Suspect]
     Indication: DEPRESSION
     Dosage: 30 MG
  5. ROPINIROLE [Suspect]
     Indication: RESTLESS LEGS SYNDROME
     Dosage: 0.75 MG

REACTIONS (5)
  - NICOTINE DEPENDENCE [None]
  - PATHOLOGICAL GAMBLING [None]
  - THEFT [None]
  - SUICIDE ATTEMPT [None]
  - EMOTIONAL DISTRESS [None]
